FAERS Safety Report 15877104 (Version 1)
Quarter: 2019Q1

REPORT INFORMATION
  Report Type: Spontaneous
  Country: US (occurrence: US)
  Receive Date: 20190128
  Receipt Date: 20190128
  Transmission Date: 20190417
  Serious: Yes (Other)
  Sender: FDA-Public Use
  Company Number: US-SAKK-2019SA015637AA

PATIENT
  Age: 64 Year
  Sex: Male

DRUGS (17)
  1. MYCOPHENOLATE [Concomitant]
     Active Substance: MYCOPHENOLIC ACID
  2. DUPIXENT [Suspect]
     Active Substance: DUPILUMAB
     Indication: DERMATITIS ATOPIC
     Dosage: 300 MG, QOW
     Route: 058
     Dates: start: 20180827
  3. DIPHENHYDRAMINE. [Concomitant]
     Active Substance: DIPHENHYDRAMINE
  4. TRETINOIN. [Concomitant]
     Active Substance: TRETINOIN
  5. PRILOSEC [Concomitant]
     Active Substance: OMEPRAZOLE MAGNESIUM
  6. TRIAMCINOLONE [Concomitant]
     Active Substance: TRIAMCINOLONE
  7. ROSUVASTATIN. [Concomitant]
     Active Substance: ROSUVASTATIN
  8. DESONIDE. [Concomitant]
     Active Substance: DESONIDE
  9. FLUTICASONE. [Concomitant]
     Active Substance: FLUTICASONE
  10. LISINOPRIL. [Concomitant]
     Active Substance: LISINOPRIL
  11. TURMERIC [CURCUMA LONGA] [Concomitant]
  12. ALEVE [Concomitant]
     Active Substance: NAPROXEN SODIUM
  13. TUMS [Concomitant]
     Active Substance: CALCIUM CARBONATE
  14. TYLENOL [Concomitant]
     Active Substance: ACETAMINOPHEN
  15. ACETYLSALICYLIC ACID [Concomitant]
     Active Substance: ASPIRIN
  16. CLOBETASOL [Concomitant]
     Active Substance: CLOBETASOL
  17. LORATADINE. [Concomitant]
     Active Substance: LORATADINE

REACTIONS (9)
  - Intraocular pressure increased [Unknown]
  - Ophthalmic herpes simplex [Unknown]
  - Eye disorder [Unknown]
  - Keratitis [Unknown]
  - Keratoconus [Unknown]
  - Keratitis [Unknown]
  - Visual impairment [Unknown]
  - Lacrimation increased [Unknown]
  - Herpes ophthalmic [Unknown]

NARRATIVE: CASE EVENT DATE: 20181204
